FAERS Safety Report 6828039-7 (Version None)
Quarter: 2010Q3

REPORT INFORMATION
  Report Type: 
  Country: None (occurrence: None)
  Receive Date: 20100709
  Receipt Date: 20100630
  Transmission Date: 20110219
  Serious: Yes (Other)
  Sender: FDA-Public Use
  Company Number: B0641128A

PATIENT
  Age: 43 Year
  Sex: Male

DRUGS (5)
  1. FLUTIDE [Suspect]
     Indication: ASTHMA
     Route: 055
  2. RITONAVIR [Suspect]
     Indication: HIV INFECTION
     Route: 048
  3. SERETIDE [Suspect]
     Indication: ASTHMA
     Dosage: 500MCG PER DAY
     Route: 055
  4. NORVIR [Suspect]
     Indication: HIV INFECTION
     Dosage: 100MG PER DAY
     Route: 048
  5. BUDESONIDE [Suspect]

REACTIONS (8)
  - ADRENAL INSUFFICIENCY [None]
  - ARTHRALGIA [None]
  - BLOOD CORTICOTROPHIN DECREASED [None]
  - BLOOD CORTISOL DECREASED [None]
  - BONE DENSITY DECREASED [None]
  - CUSHING'S SYNDROME [None]
  - DRUG INTERACTION [None]
  - OSTEONECROSIS [None]
